FAERS Safety Report 23826638 (Version 1)
Quarter: 2024Q2

REPORT INFORMATION
  Report Type: Spontaneous
  Country: US (occurrence: US)
  Receive Date: 20240507
  Receipt Date: 20240507
  Transmission Date: 20240715
  Serious: No
  Sender: FDA-Public Use
  Company Number: US-UCBSA-2024005910

PATIENT
  Sex: Female

DRUGS (1)
  1. CIMZIA [Suspect]
     Active Substance: CERTOLIZUMAB PEGOL
     Indication: Axial spondyloarthritis
     Dosage: 400 MILLIGRAM, EV 2 WEEKS(QOW)/ INJECT 2 SYRINGES UNDER THE SKIN AT WEEKS 0, 2 AND 4
     Route: 058
     Dates: start: 202312

REACTIONS (1)
  - Axial spondyloarthritis [Recovered/Resolved]
